FAERS Safety Report 4730088-X (Version None)
Quarter: 2005Q3

REPORT INFORMATION
  Report Type: 
  Country: None (occurrence: None)
  Receive Date: 20050801
  Receipt Date: 20050721
  Transmission Date: 20060218
  Serious: Yes (Other)
  Sender: FDA-Public Use
  Company Number: US-AMGEN-US143917

PATIENT
  Sex: Female

DRUGS (17)
  1. ENBREL [Suspect]
     Indication: DRUG USE FOR UNKNOWN INDICATION
     Dates: start: 20050201, end: 20050301
  2. SULFASALAZINE [Concomitant]
     Dates: start: 20050101
  3. ALLEGRA [Concomitant]
     Dates: start: 20040601
  4. DIAZEPAM [Concomitant]
     Dates: start: 20030601
  5. WELLBUTRIN [Concomitant]
     Dates: start: 20030601
  6. LEXAPRO [Concomitant]
     Dates: start: 20030601
  7. TRAZODONE HCL [Concomitant]
     Dates: start: 20030601
  8. BUTALBITAL [Concomitant]
     Dates: start: 20040101
  9. DARVOCET-N 100 [Concomitant]
     Dates: start: 20041201
  10. PROMETHAZINE [Concomitant]
     Dates: start: 20050101
  11. DEPAKOTE [Concomitant]
     Dates: start: 20041201
  12. MAXALT [Concomitant]
     Dates: start: 20050101
  13. DURAGESIC-100 [Concomitant]
     Route: 062
     Dates: start: 20050101
  14. ALBUTEROL [Concomitant]
     Route: 055
     Dates: start: 20030601
  15. ACIPHEX [Concomitant]
     Dates: start: 20040601
  16. SOMA [Concomitant]
     Dates: start: 20050201
  17. ADVAIR DISKUS 100/50 [Concomitant]
     Dates: start: 20050501

REACTIONS (7)
  - ASTHMA [None]
  - CONDITION AGGRAVATED [None]
  - CONTUSION [None]
  - INJECTION SITE REACTION [None]
  - PAIN [None]
  - PNEUMONIA [None]
  - SWELLING [None]
